FAERS Safety Report 12462164 (Version 2)
Quarter: 2016Q4

REPORT INFORMATION
  Report Type: Report from Study
  Country: US (occurrence: US)
  Receive Date: 20160613
  Receipt Date: 20161201
  Transmission Date: 20170207
  Serious: Yes (Other)
  Sender: FDA-Public Use
  Company Number: US-BAXALTA-2016BLT003929

PATIENT
  Sex: Female

DRUGS (1)
  1. GAMMAGARD LIQUID [Suspect]
     Active Substance: HUMAN IMMUNOGLOBULIN G
     Indication: IMMUNODEFICIENCY COMMON VARIABLE
     Dosage: UNK, EVERY 4 WK
     Route: 042

REACTIONS (4)
  - Hypersensitivity [Not Recovered/Not Resolved]
  - Sinus disorder [Not Recovered/Not Resolved]
  - Throat irritation [Unknown]
  - Conjunctivitis allergic [Unknown]

NARRATIVE: CASE EVENT DATE: 2016
